FAERS Safety Report 21944950 (Version 1)
Quarter: 2023Q1

REPORT INFORMATION
  Report Type: Spontaneous
  Country: US (occurrence: US)
  Receive Date: 20230202
  Receipt Date: 20230202
  Transmission Date: 20230418
  Serious: No
  Sender: FDA-Public Use
  Company Number: US-GSK-US2023009430

PATIENT
  Age: 76 Year
  Sex: Female

DRUGS (1)
  1. TRELEGY ELLIPTA [Suspect]
     Active Substance: FLUTICASONE FUROATE\UMECLIDINIUM BROMIDE\VILANTEROL TRIFENATATE
     Indication: Chronic obstructive pulmonary disease
     Dosage: 1 PUFF(S), TRELEGY 100
     Route: 055

REACTIONS (4)
  - COVID-19 [Recovered/Resolved with Sequelae]
  - Chronic obstructive pulmonary disease [Unknown]
  - Emphysema [Unknown]
  - Condition aggravated [Unknown]
